FAERS Safety Report 6490748-X (Version None)
Quarter: 2009Q4

REPORT INFORMATION
  Report Type: 
  Country: None (occurrence: None)
  Receive Date: 20091211
  Receipt Date: 20091207
  Transmission Date: 20100525
  Serious: Yes (Life-Threatening, Hospitalization)
  Sender: FDA-Public Use
  Company Number: RU-ROCHE-673308

PATIENT
  Sex: Female
  Weight: 66 kg

DRUGS (4)
  1. CAPECITABINE [Suspect]
     Indication: BREAST CANCER
     Dosage: LAST DOSE PRIOR TO SAE: 26 NOVEMBER 2009.
     Route: 048
     Dates: start: 20090818
  2. TRASTUZUMAB [Suspect]
     Indication: BREAST CANCER
     Dosage: ROUTE: IV INFUSION.  DOSE FORM: INFUSION SOLUTION. LAST DOSE PRIOR TO SAE: 12 NOVEMBER 2009.
     Route: 042
     Dates: start: 20090818
  3. BEVACIZUMAB [Suspect]
     Indication: BREAST CANCER
     Dosage: ROUTE: IV INFUSION.  DOSE FORM: INFUSION SOLUTION. LAST DOSE PRIOR TO SAE: 12 NOVEMBER 2009.
     Route: 042
     Dates: start: 20090818
  4. WARFARIN SODIUM [Suspect]
     Indication: DRUG USE FOR UNKNOWN INDICATION
     Route: 065
     Dates: end: 20091203

REACTIONS (1)
  - HAEMATURIA [None]
